FAERS Safety Report 4633980-X (Version None)
Quarter: 2005Q2

REPORT INFORMATION
  Report Type: 
  Country: None (occurrence: None)
  Receive Date: 20050325
  Receipt Date: 20041228
  Transmission Date: 20051028
  Serious: No
  Sender: FDA-Public Use
  Company Number: USA041287029

PATIENT
  Age: 72 Year
  Sex: Female

DRUGS (3)
  1. FORTEO [Suspect]
     Indication: OSTEOPOROSIS
     Dosage: 20 UG DAY
     Dates: start: 20040401
  2. CALCIUM GLUCONATE [Concomitant]
  3. VITAMIN CAP [Concomitant]

REACTIONS (2)
  - HAIR GROWTH ABNORMAL [None]
  - HIRSUTISM [None]
